FAERS Safety Report 10269529 (Version 2)
Quarter: 2014Q3

REPORT INFORMATION
  Report Type: Spontaneous
  Country: US (occurrence: US)
  Receive Date: 20140701
  Receipt Date: 20140701
  Transmission Date: 20150326
  Serious: No
  Sender: FDA-Public Use
  Company Number: US-AMGEN-USASP2014042470

PATIENT
  Age: 58 Year
  Sex: Female
  Weight: 76.19 kg

DRUGS (2)
  1. ENBREL [Suspect]
     Active Substance: ETANERCEPT
     Indication: RHEUMATOID ARTHRITIS
     Dosage: 50 MG, QWK
     Route: 058
     Dates: start: 20140516
  2. NABUMETONE. [Concomitant]
     Active Substance: NABUMETONE
     Dosage: 750 MG, BID
     Route: 048
     Dates: start: 20120905

REACTIONS (9)
  - Insomnia [Recovered/Resolved]
  - Injection site pruritus [Not Recovered/Not Resolved]
  - Injection site pain [Not Recovered/Not Resolved]
  - Pruritus [Recovered/Resolved]
  - Arthralgia [Recovered/Resolved]
  - Fatigue [Recovered/Resolved]
  - Paraesthesia [Recovered/Resolved]
  - Injection site urticaria [Not Recovered/Not Resolved]
  - Injection site reaction [Recovered/Resolved]

NARRATIVE: CASE EVENT DATE: 20140531
